FAERS Safety Report 7329352-X (Version None)
Quarter: 2011Q1

REPORT INFORMATION
  Report Type: 
  Country: None (occurrence: None)
  Receive Date: 20110303
  Receipt Date: 20110222
  Transmission Date: 20110831
  Serious: Yes (Death, Life-Threatening, Hospitalization, Disabling)
  Sender: FDA-Public Use
  Company Number: US-MERCK-1102USA01200

PATIENT
  Age: 54 Year
  Sex: Male
  Weight: 167 kg

DRUGS (10)
  1. BUPROPION HYDROCHLORIDE [Concomitant]
     Route: 065
  2. JANUVIA [Suspect]
     Indication: TYPE 2 DIABETES MELLITUS
     Route: 048
     Dates: start: 20090324
  3. HYDROCODONE [Concomitant]
     Route: 065
  4. JANUMET [Suspect]
     Indication: TYPE 2 DIABETES MELLITUS
     Route: 048
  5. METFORMIN [Concomitant]
     Route: 065
  6. CITALOPRAM [Concomitant]
     Route: 065
  7. HYDROCHLOROTHIAZIDE AND LISINOPRIL [Concomitant]
     Indication: HYPERTENSION
     Route: 048
  8. GLIPIZIDE [Concomitant]
     Indication: TYPE 2 DIABETES MELLITUS
     Route: 065
  9. LORAZEPAM [Concomitant]
     Route: 065
  10. SIMVASTATIN [Concomitant]
     Indication: HYPERLIPIDAEMIA
     Route: 048

REACTIONS (20)
  - MULTIPLE DRUG OVERDOSE [None]
  - SLEEP APNOEA SYNDROME [None]
  - SOMNOLENCE [None]
  - ALCOHOL ABUSE [None]
  - LACTIC ACIDOSIS [None]
  - SUICIDE ATTEMPT [None]
  - INTENTIONAL OVERDOSE [None]
  - SUICIDAL IDEATION [None]
  - ANXIETY [None]
  - COMPLETED SUICIDE [None]
  - LEUKOCYTOSIS [None]
  - TREMOR [None]
  - RENAL TUBULAR NECROSIS [None]
  - INSOMNIA [None]
  - MAJOR DEPRESSION [None]
  - METABOLIC ACIDOSIS [None]
  - DEPRESSION [None]
  - HEPATITIS [None]
  - HYPERKALAEMIA [None]
  - VIRAL UPPER RESPIRATORY TRACT INFECTION [None]
